FAERS Safety Report 5912260-6 (Version None)
Quarter: 2008Q4

REPORT INFORMATION
  Report Type: 
  Country: None (occurrence: None)
  Receive Date: 20081008
  Receipt Date: 20080929
  Transmission Date: 20090506
  Serious: Yes (Hospitalization)
  Sender: FDA-Public Use
  Company Number: B0539210A

PATIENT
  Age: 52 Year
  Sex: Male

DRUGS (3)
  1. DEROXAT [Suspect]
     Indication: DRUG USE FOR UNKNOWN INDICATION
     Route: 048
     Dates: start: 20080904, end: 20080909
  2. BACTRIM [Suspect]
     Indication: DRUG USE FOR UNKNOWN INDICATION
     Route: 048
     Dates: start: 20080827, end: 20080911
  3. CORTICOTHERAPY [Concomitant]
     Dosage: 15MG PER DAY
     Route: 065

REACTIONS (3)
  - GRAFT VERSUS HOST DISEASE [None]
  - RASH MACULO-PAPULAR [None]
  - TOXIC SKIN ERUPTION [None]
